FAERS Safety Report 14352408 (Version 10)
Quarter: 2018Q4

REPORT INFORMATION
  Report Type: Spontaneous
  Country: CA (occurrence: CA)
  Receive Date: 20180104
  Receipt Date: 20181226
  Transmission Date: 20190204
  Serious: Yes (Hospitalization, Other)
  Sender: FDA-Public Use
  Company Number: CA-CELLTRION INC.-2017CA012252

PATIENT

DRUGS (8)
  1. INFLECTRA [Suspect]
     Active Substance: INFLIXIMAB-DYYB
     Dosage: 400 MG, CYCLIC (EVERY 6 WEEKS); INTRAVENOUS
     Route: 042
     Dates: start: 20181214
  2. INFLECTRA [Suspect]
     Active Substance: INFLIXIMAB-DYYB
     Dosage: 407.5 MG, EVERY 6 WEEKS
     Route: 042
     Dates: start: 20180803
  3. METHOTREXATE. [Concomitant]
     Active Substance: METHOTREXATE
     Dosage: 15 MG, 1/WEEK
     Route: 048
     Dates: start: 2016
  4. INFLECTRA [Suspect]
     Active Substance: INFLIXIMAB-DYYB
     Indication: RHEUMATOID ARTHRITIS
     Dosage: 400 MG, CYCLIC (5 MG/KG; EVERY 0,2,6 WEEKS THEN EVERY 8 WEEKS)
     Route: 042
     Dates: start: 20170922, end: 20170922
  5. INFLECTRA [Suspect]
     Active Substance: INFLIXIMAB-DYYB
     Dosage: 400 MG, CYCLIC (5 MG/KG; EVERY 0,2,6 WEEKS THEN EVERY 8 WEEKS)
     Route: 042
     Dates: start: 20180105
  6. INFLECTRA [Suspect]
     Active Substance: INFLIXIMAB-DYYB
     Dosage: 400 MG,EVERY 6 WEEKS
     Route: 042
     Dates: start: 20180615
  7. INFLECTRA [Suspect]
     Active Substance: INFLIXIMAB-DYYB
     Dosage: 400 MG, CYCLIC (5 MG/KG; EVERY 0,2,6 WEEKS THEN EVERY 8 WEEKS)
     Route: 042
     Dates: start: 20180427, end: 20180427
  8. INFLECTRA [Suspect]
     Active Substance: INFLIXIMAB-DYYB
     Dosage: 400 MG, CYCLIC (EVERY 6 WEEKS); INTRAVENOUS
     Route: 042
     Dates: start: 20181018

REACTIONS (5)
  - Product use issue [Unknown]
  - Product use issue [Unknown]
  - Blood pressure fluctuation [Unknown]
  - Pleural effusion [Unknown]
  - Malaise [Not Recovered/Not Resolved]

NARRATIVE: CASE EVENT DATE: 2017
